FAERS Safety Report 13112031 (Version 2)
Quarter: 2017Q1

REPORT INFORMATION
  Report Type: Report from Study
  Country: CA (occurrence: CA)
  Receive Date: 20170113
  Receipt Date: 20170125
  Transmission Date: 20170428
  Serious: Yes (Hospitalization, Other)
  Sender: FDA-Public Use
  Company Number: CA-AMGEN-CANSL2017004265

PATIENT
  Age: 75 Year
  Sex: Female

DRUGS (13)
  1. PROLIA [Suspect]
     Active Substance: DENOSUMAB
     Indication: PRODUCT USED FOR UNKNOWN INDICATION
     Dosage: UNK
     Route: 065
     Dates: start: 20160908
  2. HYDROMORPHONE [Suspect]
     Active Substance: HYDROMORPHONE
     Indication: PRODUCT USED FOR UNKNOWN INDICATION
     Route: 065
  3. SENNOSIDE [Concomitant]
     Active Substance: SENNOSIDES
  4. BISOPROLOL [Concomitant]
     Active Substance: BISOPROLOL
  5. LORAZEPAM. [Suspect]
     Active Substance: LORAZEPAM
     Indication: PRODUCT USED FOR UNKNOWN INDICATION
     Route: 065
  6. VITAMIN B12 [Concomitant]
     Active Substance: CYANOCOBALAMIN
  7. VITAMIN D [Concomitant]
     Active Substance: CHOLECALCIFEROL
     Dosage: 1000 MG, UNK
  8. LODINE [Concomitant]
     Active Substance: ETODOLAC
  9. RATIO ATORVASTATIN [Concomitant]
  10. PRISTIQ EXTENDED-RELEASE [Concomitant]
     Active Substance: DESVENLAFAXINE SUCCINATE
  11. ZOPICLONE [Suspect]
     Active Substance: ZOPICLONE
     Indication: PRODUCT USED FOR UNKNOWN INDICATION
     Route: 065
  12. RAMIPRIL. [Concomitant]
     Active Substance: RAMIPRIL
  13. PREGABALIN. [Concomitant]
     Active Substance: PREGABALIN

REACTIONS (4)
  - Hallucination [Unknown]
  - Monoplegia [Unknown]
  - Spinal compression fracture [Unknown]
  - Abasia [Unknown]
